FAERS Safety Report 5123383-6 (Version None)
Quarter: 2006Q4

REPORT INFORMATION
  Report Type: 
  Country: None (occurrence: None)
  Receive Date: 20061005
  Receipt Date: 20060921
  Transmission Date: 20070319
  Serious: Yes (Hospitalization)
  Sender: FDA-Public Use
  Company Number: 2006_000026

PATIENT
  Age: 32 Year
  Sex: Male

DRUGS (3)
  1. DEPOCYT [Suspect]
     Indication: LEUKAEMIA
     Dosage: 50 MG; QQW; INTH
     Route: 037
     Dates: start: 20060720, end: 20060817
  2. DEPOCYT [Suspect]
     Indication: NERVOUS SYSTEM DISORDER
     Dosage: 50 MG; QQW; INTH
     Route: 037
     Dates: start: 20060720, end: 20060817
  3. ACYCLOVIR [Concomitant]

REACTIONS (10)
  - ANURIA [None]
  - ASPARTATE AMINOTRANSFERASE INCREASED [None]
  - BLISTER [None]
  - HYPOPROTEINAEMIA [None]
  - HYPOXIA [None]
  - INTERSTITIAL LUNG DISEASE [None]
  - NEUTROPENIA [None]
  - OEDEMA [None]
  - PANCYTOPENIA [None]
  - PYREXIA [None]
